FAERS Safety Report 9877234 (Version 2)
Quarter: 2014Q1

REPORT INFORMATION
  Report Type: Spontaneous
  Country: GB (occurrence: GB)
  Receive Date: 20140206
  Receipt Date: 20140206
  Transmission Date: 20141002
  Serious: Yes (Death, Hospitalization)
  Sender: FDA-Public Use
  Company Number: GB-TEVA-434325ISR

PATIENT
  Age: 85 Year
  Sex: Male

DRUGS (16)
  1. GABAPENTIN [Suspect]
     Indication: POST HERPETIC NEURALGIA
     Dosage: 300 MILLIGRAM DAILY;
     Route: 048
     Dates: start: 20130812, end: 20130815
  2. GABAPENTIN [Suspect]
     Indication: POST HERPETIC NEURALGIA
     Dosage: 600 MILLIGRAM DAILY;
     Route: 048
     Dates: start: 20130815, end: 20130816
  3. GABAPENTIN [Suspect]
     Indication: POST HERPETIC NEURALGIA
     Dosage: 900 MILLIGRAM DAILY;
     Route: 048
     Dates: start: 20130816, end: 20130820
  4. GABAPENTIN [Suspect]
     Indication: POST HERPETIC NEURALGIA
     Dosage: 600 MILLIGRAM DAILY;
     Route: 048
     Dates: start: 20130821, end: 20130822
  5. GABAPENTIN [Suspect]
     Indication: POST HERPETIC NEURALGIA
     Dosage: 500 MILLIGRAM DAILY; 200MG IN THE MORNING AND 300MG AT NIGHT.
     Route: 048
     Dates: start: 20130823, end: 20130824
  6. GABAPENTIN [Suspect]
     Indication: POST HERPETIC NEURALGIA
     Dosage: 400 MILLIGRAM DAILY;
     Route: 048
     Dates: start: 20130825, end: 20130825
  7. GABAPENTIN [Suspect]
     Indication: POST HERPETIC NEURALGIA
     Dosage: 300 MILLIGRAM DAILY; 100MG IN THE MORNING, 200MG AT NIGHT.
     Route: 048
     Dates: start: 20130826, end: 20130826
  8. GABAPENTIN [Suspect]
     Indication: POST HERPETIC NEURALGIA
     Dosage: 200 MILLIGRAM DAILY;
     Route: 048
     Dates: start: 20130827, end: 20130827
  9. GABAPENTIN [Suspect]
     Indication: POST HERPETIC NEURALGIA
     Dosage: 100 MILLIGRAM DAILY;
     Route: 048
     Dates: start: 20130828, end: 20130829
  10. WARFARIN [Concomitant]
     Dosage: ONGOING.
  11. SPIRONOLACTONE [Concomitant]
     Dosage: ONGOING.
  12. CANDESARTAN [Concomitant]
     Dosage: ONGOING.
  13. FENOFIBRATE [Concomitant]
     Dosage: ONGOING.
  14. BISOPROLOL [Concomitant]
     Dosage: 5 MG IN THE MORNING. DOSE INCREASED DURING ADMISSION.
  15. CO-CODAMOL [Concomitant]
     Dosage: 30/500MG. NEW
  16. PERHEXILINE [Concomitant]
     Dosage: 250 MILLIGRAM DAILY; 100MG IN THE MORNING, 150 MG IN THE EVENING. ONGOING. CLINICAL TRIAL.
     Route: 048

REACTIONS (8)
  - Hallucination, visual [Not Recovered/Not Resolved]
  - Confusional state [Not Recovered/Not Resolved]
  - Tremor [Not Recovered/Not Resolved]
  - Fall [Not Recovered/Not Resolved]
  - Pneumonia [Fatal]
  - Multi-organ failure [Fatal]
  - Ischaemic cardiomyopathy [Fatal]
  - Renal failure chronic [Fatal]
